FAERS Safety Report 7561581-2 (Version None)
Quarter: 2011Q2

REPORT INFORMATION
  Report Type: 
  Country: None (occurrence: None)
  Receive Date: 20110621
  Receipt Date: 20110114
  Transmission Date: 20111010
  Serious: No
  Sender: FDA-Public Use
  Company Number: US-ASTRAZENECA-2006UW03683

PATIENT
  Age: 14 Year
  Sex: Male
  Weight: 32.7 kg

DRUGS (6)
  1. SINGULAIR [Concomitant]
  2. PULMICORT [Suspect]
     Route: 055
  3. PULMICORT [Suspect]
     Route: 055
     Dates: start: 20000101
  4. ASCORBIC ACID [Concomitant]
  5. ALBUTEROL SULFATE AUTOHALER [Concomitant]
  6. PULMICORT [Suspect]
     Indication: ASTHMA
     Dosage: 1-2 TIMES DAILY
     Route: 055
     Dates: start: 20000801

REACTIONS (3)
  - BLOOD URINE PRESENT [None]
  - DRUG INEFFECTIVE [None]
  - UPPER LIMB FRACTURE [None]
